FAERS Safety Report 16431480 (Version 6)
Quarter: 2022Q3

REPORT INFORMATION
  Report Type: Spontaneous
  Country: US (occurrence: US)
  Receive Date: 20190614
  Receipt Date: 20220802
  Transmission Date: 20221026
  Serious: No
  Sender: FDA-Public Use
  Company Number: US-PFIZER INC-2017082990

PATIENT
  Age: 21 Year
  Sex: Male
  Weight: 125 kg

DRUGS (9)
  1. XELJANZ [Suspect]
     Active Substance: TOFACITINIB CITRATE
     Indication: Alopecia universalis
     Dosage: 5 MG, 2X/DAY
     Route: 048
  2. XELJANZ [Suspect]
     Active Substance: TOFACITINIB CITRATE
     Indication: Alopecia areata
     Dosage: 15 MG, DAILY, (10 MG AM, 5 MG PM)
     Route: 048
  3. XELJANZ [Suspect]
     Active Substance: TOFACITINIB CITRATE
     Dosage: 15 MG, DAILY (TAKING THREE 5MG TABLETS PER DAY)
  4. XELJANZ [Suspect]
     Active Substance: TOFACITINIB CITRATE
     Dosage: 15 MG, DAILY (TAKING TWO 5 MG PILLS IN THE MORNING AND ONE 5 MG)
     Dates: start: 20170306
  5. XELJANZ [Suspect]
     Active Substance: TOFACITINIB CITRATE
     Dosage: 15 MG, DAILY (TWO TABLETS IN THE MORNING AND 1 TABLET IN THE EVENING)
  6. XELJANZ [Suspect]
     Active Substance: TOFACITINIB CITRATE
     Dosage: 5 MG, 3X/DAY
  7. XELJANZ [Suspect]
     Active Substance: TOFACITINIB CITRATE
     Dosage: 5 MG, AT NIGHT [5MG AT NIGHT]
  8. XELJANZ [Suspect]
     Active Substance: TOFACITINIB CITRATE
     Dosage: UNK,(10MG PO QAM AND 5MG QPM)
     Route: 048
  9. ZYRTEC [Concomitant]
     Active Substance: CETIRIZINE HYDROCHLORIDE
     Indication: Hypersensitivity
     Dosage: 10 MG, DAILY (ONE PILL EVERY DAY)

REACTIONS (5)
  - Off label use [Unknown]
  - Intentional product use issue [Unknown]
  - Drug effective for unapproved indication [Unknown]
  - Off label use [Unknown]
  - Drug hypersensitivity [Unknown]
